FAERS Safety Report 14162795 (Version 2)
Quarter: 2017Q4

REPORT INFORMATION
  Report Type: Spontaneous
  Country: US (occurrence: US)
  Receive Date: 20171106
  Receipt Date: 20171201
  Transmission Date: 20180321
  Serious: Yes (Other)
  Sender: FDA-Public Use
  Company Number: US-PFIZER INC-2017473303

PATIENT
  Age: 15 Year
  Sex: Male
  Weight: 40.37 kg

DRUGS (2)
  1. AXERT [Concomitant]
     Active Substance: ALMOTRIPTAN MALATE
     Indication: MIGRAINE
     Dosage: 6.25 MG, AS NEEDED
  2. GENOTROPIN [Suspect]
     Active Substance: SOMATROPIN
     Indication: BODY HEIGHT BELOW NORMAL
     Dosage: 1.6 MG, DAILY
     Dates: start: 201703, end: 201709

REACTIONS (2)
  - Intentional self-injury [Unknown]
  - Drug dose omission [Unknown]

NARRATIVE: CASE EVENT DATE: 201709
